FAERS Safety Report 13400363 (Version 3)
Quarter: 2017Q2

REPORT INFORMATION
  Report Type: Report from Study
  Country: US (occurrence: US)
  Receive Date: 20170404
  Receipt Date: 20170425
  Transmission Date: 20170830
  Serious: No
  Sender: FDA-Public Use
  Company Number: US-AMGEN-USASL2017047752

PATIENT
  Age: 77 Year
  Sex: Female

DRUGS (3)
  1. HALOBETASOL PROPIONATE. [Concomitant]
     Active Substance: HALOBETASOL PROPIONATE
     Indication: RASH
     Dosage: UNK
  2. ENBREL [Suspect]
     Active Substance: ETANERCEPT
     Indication: RHEUMATOID ARTHRITIS
     Dosage: UNK
     Route: 065
  3. PERMETHRIN. [Concomitant]
     Active Substance: PERMETHRIN
     Indication: RASH
     Dosage: UNK

REACTIONS (4)
  - Rash erythematous [Unknown]
  - Drug hypersensitivity [Unknown]
  - Psoriasis [Recovering/Resolving]
  - Rash pruritic [Unknown]

NARRATIVE: CASE EVENT DATE: 201703
